FAERS Safety Report 9770963 (Version 1)
Quarter: 2013Q4

REPORT INFORMATION
  Report Type: Spontaneous
  Country: IT (occurrence: IT)
  Receive Date: 20131218
  Receipt Date: 20131218
  Transmission Date: 20140711
  Serious: Yes (Hospitalization)
  Sender: FDA-Public Use
  Company Number: IT-TEVA-449062ISR

PATIENT
  Age: 92 Year
  Sex: Female

DRUGS (6)
  1. FUROSEMIDE [Suspect]
     Indication: PRODUCT USED FOR UNKNOWN INDICATION
     Dosage: 500 MG DAILY
     Route: 048
  2. LANOXIN - 0,250 MG COMPRESSE - ASPEN PHARMA TRADING LIMITED [Suspect]
     Indication: ATRIAL FIBRILLATION
     Dosage: 0.25 MG DAILY
     Route: 048
     Dates: start: 20130101, end: 20130419
  3. COUMADIN - 5 MG COMPRESSE [Concomitant]
  4. CITALOPRAM [Concomitant]
  5. VALSARTAN [Concomitant]
  6. VESSEL [Concomitant]

REACTIONS (1)
  - Cardiac failure [Recovering/Resolving]
